FAERS Safety Report 22053235 (Version 1)
Quarter: 2023Q1

REPORT INFORMATION
  Report Type: Spontaneous
  Country: CN (occurrence: None)
  Receive Date: 20230302
  Receipt Date: 20230302
  Transmission Date: 20230418
  Serious: Yes (Other)
  Sender: FDA-Public Use
  Company Number: CN-ROCHE-3289830

PATIENT
  Age: 52 Year
  Sex: Female

DRUGS (10)
  1. HERCEPTIN [Suspect]
     Active Substance: TRASTUZUMAB
     Indication: Breast cancer
     Route: 065
     Dates: start: 20220512
  2. HERCEPTIN [Suspect]
     Active Substance: TRASTUZUMAB
     Dosage: 0/-JUN/2022, 22/JUN/2022, 14/JUL/2022
     Route: 065
  3. PERJETA [Suspect]
     Active Substance: PERTUZUMAB
     Indication: Breast cancer
     Route: 065
     Dates: start: 20220512
  4. PERJETA [Suspect]
     Active Substance: PERTUZUMAB
     Dosage: 02/JUN/2022, 22/JUN/2022, 14/JUL/2022
     Route: 065
  5. KADCYLA [Suspect]
     Active Substance: ADO-TRASTUZUMAB EMTANSINE
     Indication: Breast cancer
     Dosage: 25/AUG/2022, 15/SEP/2022, 06/OCT/2022, 05/JAN/2023, 31/JAN/2023
     Route: 065
  6. PIRARUBICIN [Concomitant]
     Active Substance: PIRARUBICIN
     Indication: Breast cancer
     Dosage: 17/MAR/2022, 31/MAR/2022
  7. CYCLOPHOSPHAMIDE [Concomitant]
     Active Substance: CYCLOPHOSPHAMIDE
     Indication: Breast cancer
     Dosage: 17/MAR/2022, 31/MAR/2022
  8. CYCLOPHOSPHAMIDE [Concomitant]
     Active Substance: CYCLOPHOSPHAMIDE
     Dosage: 13/APR/2022, 27/APR/2022
  9. PACLITAXEL [Concomitant]
     Active Substance: PACLITAXEL
     Indication: Breast cancer
     Dates: start: 20220512
  10. PACLITAXEL [Concomitant]
     Active Substance: PACLITAXEL
     Indication: Breast cancer
     Dosage: 02/JUN/2022, 22/JUN/2022, 14/JUL/2022

REACTIONS (2)
  - Platelet count decreased [Unknown]
  - Myelosuppression [Unknown]

NARRATIVE: CASE EVENT DATE: 20220905
